FAERS Safety Report 5074635-X (Version None)
Quarter: 2006Q3

REPORT INFORMATION
  Report Type: 
  Country: None (occurrence: None)
  Receive Date: 20060808
  Receipt Date: 20050826
  Transmission Date: 20061208
  Serious: No
  Sender: FDA-Public Use
  Company Number: US-AMGEN-KDL148618

PATIENT
  Sex: Female
  Weight: 68.6 kg

DRUGS (12)
  1. PROCRIT [Suspect]
     Indication: MYELODYSPLASTIC SYNDROME
     Dates: start: 20050623, end: 20050629
  2. CIPROFLOXACIN [Suspect]
     Dates: start: 20050629
  3. SYNTHROID [Concomitant]
  4. LOTREL [Concomitant]
  5. LANOXIN [Concomitant]
  6. PREMARIN [Concomitant]
  7. PREDNISONE [Concomitant]
  8. COUMADIN [Concomitant]
  9. TOPRAL [Concomitant]
  10. LORAZEPAM [Concomitant]
  11. DEMADEX [Concomitant]
  12. CLONIDINE [Concomitant]

REACTIONS (1)
  - CONVULSION [None]
